FAERS Safety Report 5580899-6 (Version None)
Quarter: 2008Q1

REPORT INFORMATION
  Report Type: 
  Country: None (occurrence: None)
  Receive Date: 20080103
  Receipt Date: 20071220
  Transmission Date: 20080703
  Serious: Yes (Hospitalization)
  Sender: FDA-Public Use
  Company Number: JP-AMGEN-US254998

PATIENT
  Sex: Female
  Weight: 53 kg

DRUGS (6)
  1. ENBREL [Suspect]
     Indication: RHEUMATOID ARTHRITIS
     Route: 058
     Dates: start: 20071023, end: 20071113
  2. IRSOGLADINE MALEATE [Suspect]
     Indication: GASTRITIS
     Route: 048
     Dates: end: 20071113
  3. TAKEPRON [Suspect]
     Indication: REFLUX OESOPHAGITIS
     Route: 048
  4. CELECOXIB [Suspect]
     Indication: RHEUMATOID ARTHRITIS
     Route: 048
     Dates: end: 20071113
  5. LIVALO [Suspect]
     Indication: HYPERLIPIDAEMIA
     Route: 048
     Dates: end: 20071113
  6. ISCOTIN [Suspect]
     Indication: ANTIBIOTIC PROPHYLAXIS
     Route: 048
     Dates: start: 20071009, end: 20071113

REACTIONS (2)
  - DERMATITIS ALLERGIC [None]
  - RASH GENERALISED [None]
